FAERS Safety Report 13287018 (Version 2)
Quarter: 2017Q1

REPORT INFORMATION
  Report Type: Spontaneous
  Country: GB (occurrence: GB)
  Receive Date: 20170302
  Receipt Date: 20170327
  Transmission Date: 20170428
  Serious: Yes (Life-Threatening)
  Sender: FDA-Public Use
  Company Number: GB-TEVA-743843ACC

PATIENT
  Age: 73 Year
  Sex: Male
  Weight: 77.11 kg

DRUGS (5)
  1. DOXYCYCLINE. [Suspect]
     Active Substance: DOXYCYCLINE
     Indication: PNEUMONIA
     Route: 048
     Dates: start: 20161228, end: 20170103
  2. DIGOXIN? [Concomitant]
     Indication: CARDIAC FAILURE
  3. VALSARTAN? [Concomitant]
     Indication: BLOOD PRESSURE MEASUREMENT
  4. WARFARIN? [Concomitant]
     Indication: CARDIAC FAILURE
     Dosage: 2 MILLIGRAM DAILY;
  5. BISOPROLOL? [Concomitant]
     Indication: CARDIAC FAILURE

REACTIONS (7)
  - Aphasia [Recovered/Resolved]
  - Cough [Recovered/Resolved]
  - Foreign body [Recovered/Resolved]
  - Antitussive therapy [Recovered/Resolved]
  - Dyspnoea [Recovered/Resolved]
  - Choking [Recovered/Resolved]
  - Throat tightness [Recovered/Resolved]

NARRATIVE: CASE EVENT DATE: 20161228
